FAERS Safety Report 5978726-8 (Version None)
Quarter: 2008Q4

REPORT INFORMATION
  Report Type: 
  Country: None (occurrence: None)
  Receive Date: 20081204
  Receipt Date: 20081125
  Transmission Date: 20090506
  Serious: Yes (Hospitalization, Other)
  Sender: FDA-Public Use
  Company Number: IE-AVENTIS-200821088GDDC

PATIENT
  Age: 52 Year
  Sex: Female

DRUGS (3)
  1. LANTUS [Suspect]
     Route: 058
  2. LANTUS [Suspect]
     Route: 058
  3. NOVORAPID [Suspect]
     Route: 058

REACTIONS (1)
  - DIABETIC KETOACIDOSIS [None]
